FAERS Safety Report 9513626 (Version 1)
Quarter: 2013Q1

REPORT INFORMATION
  Report Type: Spontaneous
  Country: US (occurrence: None)
  Receive Date: 20130305
  Receipt Date: 20130305
  Transmission Date: 20140127
  Serious: Yes (Other)
  Sender: FDA-Public Use
  Company Number: 163-21880-12110253

PATIENT
  Age: 67 Year
  Sex: Male

DRUGS (5)
  1. REVLIMID [Suspect]
     Indication: PLASMA CELL MYELOMA
     Dosage: 10 MG, 21 IN 21 D, PO
     Route: 048
     Dates: start: 20080317
  2. DEXAMEHTASONE (DEXAMETHASONE) (UNKNOWN) [Concomitant]
  3. EXCEDERIN MIGRAINE (THOMAPYRIN N) (UNKNOWN) [Concomitant]
  4. MULTIVITAMINS (MULTIVITAMINS) (CAPSULES) [Concomitant]
  5. ADVIL (IBUPROFEN) (CAPSULES) [Concomitant]

REACTIONS (5)
  - Fatigue [None]
  - Decreased appetite [None]
  - Tinnitus [None]
  - Dysgeusia [None]
  - Somnolence [None]
